FAERS Safety Report 5014977-7 (Version None)
Quarter: 2006Q2

REPORT INFORMATION
  Report Type: 
  Country: None (occurrence: None)
  Receive Date: 20060426
  Receipt Date: 20060208
  Transmission Date: 20061013
  Serious: No
  Sender: FDA-Public Use
  Company Number: US166789

PATIENT
  Sex: Female

DRUGS (1)
  1. SENSIPAR [Suspect]
     Dosage: 15 MG, 2 IN 1 DAYS, OTHER
     Route: 050

REACTIONS (2)
  - NAUSEA [None]
  - SOMNOLENCE [None]
